FAERS Safety Report 5386615-5 (Version None)
Quarter: 2007Q3

REPORT INFORMATION
  Report Type: 
  Country: None (occurrence: None)
  Receive Date: 20070713
  Receipt Date: 20070710
  Transmission Date: 20080115
  Serious: Yes (Other)
  Sender: FDA-Public Use
  Company Number: US-GENENTECH-242505

PATIENT
  Sex: Female

DRUGS (2)
  1. XOLAIR [Suspect]
     Indication: DRUG USE FOR UNKNOWN INDICATION
     Dates: end: 20061101
  2. XOLAIR [Suspect]
     Dates: start: 20070507

REACTIONS (2)
  - DIABETES MELLITUS [None]
  - SINUSITIS [None]
